FAERS Safety Report 18862740 (Version 1)
Quarter: 2021Q1

REPORT INFORMATION
  Report Type: Spontaneous
  Country: JP (occurrence: JP)
  Receive Date: 20210208
  Receipt Date: 20210208
  Transmission Date: 20210420
  Serious: Yes (Hospitalization)
  Sender: FDA-Public Use
  Company Number: JP-009507513-2102JPN000529J

PATIENT
  Age: 85 Year

DRUGS (3)
  1. AXITINIB [Concomitant]
     Active Substance: AXITINIB
     Dosage: UNK
     Route: 048
  2. AXITINIB [Concomitant]
     Active Substance: AXITINIB
     Dosage: UNK
     Route: 048
  3. KEYTRUDA [Suspect]
     Active Substance: PEMBROLIZUMAB
     Indication: RENAL CELL CARCINOMA
     Dosage: 200 MILLIGRAM, Q3W
     Route: 041
     Dates: start: 20201118, end: 20210120

REACTIONS (2)
  - Alanine aminotransferase increased [Recovered/Resolved]
  - Aspartate aminotransferase increased [Recovered/Resolved]

NARRATIVE: CASE EVENT DATE: 20210120
